FAERS Safety Report 10180661 (Version 1)
Quarter: 2014Q2

REPORT INFORMATION
  Report Type: Spontaneous
  Country: US (occurrence: US)
  Receive Date: 20140519
  Receipt Date: 20140519
  Transmission Date: 20141212
  Serious: No
  Sender: FDA-Public Use
  Company Number: US-AMGEN INC.-USASP2014021655

PATIENT
  Age: 89 Year
  Sex: Female

DRUGS (6)
  1. PROLIA [Suspect]
     Indication: OSTEOPOROSIS POSTMENOPAUSAL
     Dosage: UNK
     Route: 065
     Dates: start: 20140131
  2. VITAMIN D                          /00107901/ [Concomitant]
     Dosage: 3000 UNK, QD
  3. SYNTHROID [Concomitant]
  4. BABY ASPIRIN [Concomitant]
  5. CLARITIN                           /00413701/ [Concomitant]
  6. ANAGRELIDE [Concomitant]
     Indication: BONE MARROW DISORDER

REACTIONS (12)
  - Influenza like illness [Not Recovered/Not Resolved]
  - Pain in jaw [Recovered/Resolved]
  - Muscle spasms [Unknown]
  - Joint stiffness [Unknown]
  - Musculoskeletal disorder [Unknown]
  - Muscle tightness [Unknown]
  - Bruxism [Unknown]
  - Back pain [Unknown]
  - Fatigue [Unknown]
  - Arthralgia [Unknown]
  - Pain in extremity [Unknown]
  - Musculoskeletal pain [Unknown]
